FAERS Safety Report 11824536 (Version 3)
Quarter: 2016Q4

REPORT INFORMATION
  Report Type: Spontaneous
  Country: US (occurrence: US)
  Receive Date: 20151210
  Receipt Date: 20161121
  Transmission Date: 20170206
  Serious: Yes (Death, Hospitalization, Other)
  Sender: FDA-Public Use
  Company Number: US-ACTELION-A-US2015-128369

PATIENT
  Age: 60 Year
  Sex: Female

DRUGS (7)
  1. ADCIRCA [Concomitant]
     Active Substance: TADALAFIL
  2. HYDROXYZINE [Concomitant]
     Active Substance: HYDROXYZINE\HYDROXYZINE HYDROCHLORIDE
  3. ZOFRAN [Concomitant]
     Active Substance: ONDANSETRON HYDROCHLORIDE
  4. VELETRI [Suspect]
     Active Substance: EPOPROSTENOL
     Indication: PULMONARY ARTERIAL HYPERTENSION
     Dosage: 70 NG/KG, PER MIN
     Route: 042
     Dates: start: 20140725, end: 20151126
  5. METOPROLOL. [Concomitant]
     Active Substance: METOPROLOL
  6. LETAIRIS [Concomitant]
     Active Substance: AMBRISENTAN
  7. REVATIO [Concomitant]
     Active Substance: SILDENAFIL CITRATE

REACTIONS (4)
  - Device related infection [Fatal]
  - Staphylococcal infection [Unknown]
  - Blood culture positive [Unknown]
  - Sepsis [Fatal]

NARRATIVE: CASE EVENT DATE: 20151126
